FAERS Safety Report 7387756-3 (Version None)
Quarter: 2011Q1

REPORT INFORMATION
  Report Type: 
  Country: None (occurrence: None)
  Receive Date: 20110331
  Receipt Date: 20110329
  Transmission Date: 20110831
  Serious: Yes (Death)
  Sender: FDA-Public Use
  Company Number: US-MPIJNJ-2011-01328

PATIENT

DRUGS (2)
  1. VELCADE [Suspect]
     Indication: NEOPLASM MALIGNANT
     Dosage: UNK
     Route: 042
  2. PACLITAXEL [Suspect]
     Indication: NEOPLASM MALIGNANT
     Dosage: 50 MG/M2, CYCLIC
     Route: 042

REACTIONS (1)
  - DEATH [None]
